FAERS Safety Report 24004715 (Version 1)
Quarter: 2024Q2

REPORT INFORMATION
  Report Type: Spontaneous
  Country: US (occurrence: None)
  Receive Date: 20240621
  Receipt Date: 20240621
  Transmission Date: 20240715
  Serious: Yes (Hospitalization)
  Sender: FDA-Public Use
  Company Number: None

PATIENT
  Age: 69 Year
  Sex: Male
  Weight: 97.9 kg

DRUGS (1)
  1. BREYANZI [Suspect]
     Active Substance: LISOCABTAGENE MARALEUCEL
     Indication: B-cell lymphoma
     Dosage: 1 DF DOSAGE FORM ONCE INTRAVENOUS
     Route: 042
     Dates: start: 20240502, end: 20240502

REACTIONS (7)
  - Pyrexia [None]
  - Acute kidney injury [None]
  - Chills [None]
  - Gait disturbance [None]
  - Dizziness [None]
  - Micturition urgency [None]
  - Urinary tract infection [None]

NARRATIVE: CASE EVENT DATE: 20240505
